FAERS Safety Report 25045512 (Version 1)
Quarter: 2025Q1

REPORT INFORMATION
  Report Type: Spontaneous
  Country: PL (occurrence: PL)
  Receive Date: 20250306
  Receipt Date: 20250306
  Transmission Date: 20250409
  Serious: Yes (Other)
  Sender: MERCK SHARP & DOHME LLC
  Company Number: None

PATIENT
  Age: 2 Year
  Sex: Male

DRUGS (2)
  1. MEASLES-MUMPS-RUBELLA VIRUS VACCINE, LIVE [Suspect]
     Active Substance: MEASLES-MUMPS-RUBELLA VIRUS VACCINE, LIVE
     Indication: Prophylaxis
     Route: 030
  2. STERILE DILUENT (WATER) [Suspect]
     Active Substance: WATER
     Route: 030

REACTIONS (3)
  - Pyrexia [Recovered/Resolved]
  - Rash morbilliform [Recovered/Resolved]
  - Rash rubelliform [Recovered/Resolved]

NARRATIVE: CASE EVENT DATE: 20210818
